FAERS Safety Report 6059507-6 (Version None)
Quarter: 2009Q1

REPORT INFORMATION
  Report Type: 
  Country: None (occurrence: None)
  Receive Date: 20090130
  Receipt Date: 20090123
  Transmission Date: 20090719
  Serious: Yes (Hospitalization, Other)
  Sender: FDA-Public Use
  Company Number: GB-ELI_LILLY_AND_COMPANY-GB200901004030

PATIENT
  Age: 58 Year
  Sex: Female

DRUGS (21)
  1. FLUOXETINE [Suspect]
     Dosage: 20 MG, UNK
     Dates: start: 20071231, end: 20080119
  2. FLUOXETINE [Suspect]
     Dosage: 40 MG, UNK
     Dates: start: 20080120, end: 20080224
  3. FLUOXETINE [Suspect]
     Dosage: 60 MG, UNK
     Dates: start: 20080225, end: 20080101
  4. CLOMIPRAMINE HCL [Concomitant]
     Dosage: 25 MG, UNK
     Dates: start: 19830101, end: 20071210
  5. CLOMIPRAMINE HCL [Concomitant]
     Dosage: UNK, UNK
     Dates: start: 20080101
  6. CLOMIPRAMINE HCL [Concomitant]
     Dosage: 200 MG, DAILY (1/D)
  7. CLOMIPRAMINE HCL [Concomitant]
     Dosage: 120 MG, UNK
     Route: 048
  8. DEPAKOTE [Concomitant]
     Dosage: 500 MG, 2/D
     Route: 048
  9. SEROQUEL [Concomitant]
     Indication: ANXIETY
     Dosage: 50 MG, UNK
     Route: 048
     Dates: start: 20080401
  10. SEROQUEL [Concomitant]
     Dosage: 350 MG, DAILY (1/D)
     Route: 048
  11. SEROQUEL [Concomitant]
     Dosage: 400 MG, 2/D
     Route: 048
  12. SEROQUEL [Concomitant]
     Dosage: 500 MG, DAILY (1/D)
     Route: 048
     Dates: start: 20080901
  13. SEROQUEL [Concomitant]
     Dosage: 450 MG, DAILY (1/D)
     Route: 048
     Dates: end: 20081030
  14. SEROQUEL [Concomitant]
     Dosage: 350 MG, DAILY (1/D)
     Route: 048
     Dates: start: 20081031
  15. SEROQUEL [Concomitant]
     Dosage: 50 MG, DAILY (1/D)
     Route: 048
  16. SEROQUEL [Concomitant]
     Dosage: 300 MG, DAILY (1/D)
     Route: 048
  17. SEROQUEL [Concomitant]
     Dosage: 250 MG, 2/D
     Route: 048
  18. SIMVASTATIN [Concomitant]
     Dosage: 40 MG, UNK
  19. ZOPICLONE [Concomitant]
     Dosage: 10 MG, DAILY (1/D)
  20. PROCHLORPERAZINE [Concomitant]
     Dosage: 5 MG, 3/D
  21. PROCHLORPERAZINE [Concomitant]
     Dosage: 5 MG, 2/D

REACTIONS (12)
  - ANXIETY [None]
  - DEPRESSED MOOD [None]
  - DISTURBANCE IN SEXUAL AROUSAL [None]
  - EMOTIONAL DISTRESS [None]
  - EXTRASYSTOLES [None]
  - HEART RATE IRREGULAR [None]
  - NERVOUS SYSTEM DISORDER [None]
  - NIGHTMARE [None]
  - ORTHOSTATIC HYPOTENSION [None]
  - PALPITATIONS [None]
  - SOMNOLENCE [None]
  - SUICIDAL IDEATION [None]
